FAERS Safety Report 22176528 (Version 1)
Quarter: 2023Q2

REPORT INFORMATION
  Report Type: Spontaneous
  Country: US (occurrence: US)
  Receive Date: 20230405
  Receipt Date: 20230405
  Transmission Date: 20230722
  Serious: No
  Sender: FDA-Public Use
  Company Number: US-drreddys-LIT/USA/23/0161220

PATIENT
  Age: 59 Year
  Sex: Female

DRUGS (64)
  1. FLUOXETINE [Suspect]
     Active Substance: FLUOXETINE HYDROCHLORIDE
     Indication: Major depression
  2. FLUOXETINE [Suspect]
     Active Substance: FLUOXETINE HYDROCHLORIDE
     Indication: Generalised anxiety disorder
  3. MONTELUKAST [Suspect]
     Active Substance: MONTELUKAST SODIUM
     Indication: Asthma
  4. MONTELUKAST [Suspect]
     Active Substance: MONTELUKAST SODIUM
     Indication: Pain
  5. MONTELUKAST [Suspect]
     Active Substance: MONTELUKAST SODIUM
     Indication: Asthma
  6. ATORVASTATIN [Suspect]
     Active Substance: ATORVASTATIN
     Indication: Hyperlipidaemia
  7. ATORVASTATIN [Suspect]
     Active Substance: ATORVASTATIN
     Indication: Pain
  8. ATORVASTATIN [Suspect]
     Active Substance: ATORVASTATIN
     Indication: Asthma
  9. METFORMIN [Suspect]
     Active Substance: METFORMIN HYDROCHLORIDE
     Indication: Diabetes mellitus
  10. METFORMIN [Suspect]
     Active Substance: METFORMIN HYDROCHLORIDE
     Indication: Pain
  11. METFORMIN [Suspect]
     Active Substance: METFORMIN HYDROCHLORIDE
     Indication: Asthma
  12. METFORMIN [Suspect]
     Active Substance: METFORMIN HYDROCHLORIDE
     Indication: Asthma
  13. LEVOTHYROXINE SODIUM [Suspect]
     Active Substance: LEVOTHYROXINE SODIUM
     Indication: Hypothyroidism
  14. LEVOTHYROXINE SODIUM [Suspect]
     Active Substance: LEVOTHYROXINE SODIUM
     Indication: Pain
  15. LEVOTHYROXINE SODIUM [Suspect]
     Active Substance: LEVOTHYROXINE SODIUM
     Indication: Asthma
  16. LEVOTHYROXINE SODIUM [Suspect]
     Active Substance: LEVOTHYROXINE SODIUM
     Indication: Asthma
  17. DILTIAZEM HYDROCHLORIDE [Suspect]
     Active Substance: DILTIAZEM HYDROCHLORIDE
     Indication: Cardiomyopathy
     Dosage: AT NIGHT
  18. DILTIAZEM HYDROCHLORIDE [Suspect]
     Active Substance: DILTIAZEM HYDROCHLORIDE
     Indication: Pain
  19. DILTIAZEM HYDROCHLORIDE [Suspect]
     Active Substance: DILTIAZEM HYDROCHLORIDE
     Indication: Asthma
  20. PRAMIPEXOLE [Suspect]
     Active Substance: PRAMIPEXOLE
     Indication: Restless legs syndrome
  21. PRAMIPEXOLE [Suspect]
     Active Substance: PRAMIPEXOLE
     Indication: Pain
  22. PRAMIPEXOLE [Suspect]
     Active Substance: PRAMIPEXOLE
     Indication: Asthma
  23. PRAMIPEXOLE [Suspect]
     Active Substance: PRAMIPEXOLE
     Indication: Asthma
  24. ACETAMINOPHEN [Suspect]
     Active Substance: ACETAMINOPHEN
     Indication: Pain
  25. BACLOFEN [Suspect]
     Active Substance: BACLOFEN
     Indication: Muscle spasms
  26. ALBUTEROL\IPRATROPIUM [Suspect]
     Active Substance: ALBUTEROL\IPRATROPIUM
     Indication: Asthma
  27. ALBUTEROL\IPRATROPIUM [Suspect]
     Active Substance: ALBUTEROL\IPRATROPIUM
     Indication: Pain
  28. ASPIRIN [Suspect]
     Active Substance: ASPIRIN
     Indication: Cardiomyopathy
  29. ASPIRIN [Suspect]
     Active Substance: ASPIRIN
     Indication: Pain
  30. ASPIRIN [Suspect]
     Active Substance: ASPIRIN
     Indication: Asthma
  31. FUROSEMIDE [Suspect]
     Active Substance: FUROSEMIDE
     Indication: Cardiomyopathy
  32. FUROSEMIDE [Suspect]
     Active Substance: FUROSEMIDE
     Indication: Pain
  33. FUROSEMIDE [Suspect]
     Active Substance: FUROSEMIDE
     Indication: Asthma
  34. LOSARTAN [Suspect]
     Active Substance: LOSARTAN
     Indication: Cardiomyopathy
  35. LOSARTAN [Suspect]
     Active Substance: LOSARTAN
     Indication: Pain
  36. LOSARTAN [Suspect]
     Active Substance: LOSARTAN
     Indication: Asthma
  37. SITAGLIPTIN [Suspect]
     Active Substance: SITAGLIPTIN
     Indication: Diabetes mellitus
  38. SITAGLIPTIN [Suspect]
     Active Substance: SITAGLIPTIN
     Indication: Pain
  39. SITAGLIPTIN [Suspect]
     Active Substance: SITAGLIPTIN
     Indication: Asthma
  40. SITAGLIPTIN [Suspect]
     Active Substance: SITAGLIPTIN
     Indication: Asthma
  41. GLIPIZIDE [Suspect]
     Active Substance: GLIPIZIDE
     Indication: Diabetes mellitus
  42. GLIPIZIDE [Suspect]
     Active Substance: GLIPIZIDE
     Indication: Pain
  43. GLIPIZIDE [Suspect]
     Active Substance: GLIPIZIDE
     Indication: Asthma
  44. GLIPIZIDE [Suspect]
     Active Substance: GLIPIZIDE
     Indication: Asthma
  45. GABAPENTIN [Suspect]
     Active Substance: GABAPENTIN
     Indication: Neuropathy peripheral
  46. GABAPENTIN [Suspect]
     Active Substance: GABAPENTIN
     Indication: Pain
  47. GABAPENTIN [Suspect]
     Active Substance: GABAPENTIN
     Indication: Asthma
  48. GABAPENTIN [Suspect]
     Active Substance: GABAPENTIN
     Indication: Asthma
  49. GABAPENTIN [Suspect]
     Active Substance: GABAPENTIN
     Indication: Neuropathy peripheral
  50. CALCIUM CARBONATE [Suspect]
     Active Substance: CALCIUM CARBONATE
     Indication: Hypovitaminosis
  51. CALCIUM CARBONATE [Suspect]
     Active Substance: CALCIUM CARBONATE
     Indication: Pain
  52. CALCIUM CARBONATE [Suspect]
     Active Substance: CALCIUM CARBONATE
     Indication: Asthma
  53. CALCIUM CARBONATE [Suspect]
     Active Substance: CALCIUM CARBONATE
     Indication: Asthma
  54. CALCIUM CARBONATE [Suspect]
     Active Substance: CALCIUM CARBONATE
     Indication: Neuropathy peripheral
  55. FERROUS SULFATE [Suspect]
     Active Substance: FERROUS SULFATE
     Indication: Hypovitaminosis
  56. FERROUS SULFATE [Suspect]
     Active Substance: FERROUS SULFATE
     Indication: Pain
  57. FERROUS SULFATE [Suspect]
     Active Substance: FERROUS SULFATE
     Indication: Asthma
  58. FERROUS SULFATE [Suspect]
     Active Substance: FERROUS SULFATE
     Indication: Asthma
  59. FERROUS SULFATE [Suspect]
     Active Substance: FERROUS SULFATE
     Indication: Neuropathy peripheral
  60. BUPROPION [Suspect]
     Active Substance: BUPROPION
     Indication: Major depression
  61. BUPROPION [Suspect]
     Active Substance: BUPROPION
     Indication: Generalised anxiety disorder
  62. DOXEPIN [Suspect]
     Active Substance: DOXEPIN
     Indication: Generalised anxiety disorder
     Dosage: AT NIGHT
     Dates: end: 202011
  63. DOXEPIN [Suspect]
     Active Substance: DOXEPIN
     Indication: Major depression
  64. HYDROCODONE [Suspect]
     Active Substance: HYDROCODONE
     Indication: Pain
     Dates: end: 202109

REACTIONS (6)
  - Drug-genetic interaction [Recovering/Resolving]
  - Drug interaction [Unknown]
  - Joint injury [Unknown]
  - Fall [Unknown]
  - Sedation complication [Recovering/Resolving]
  - Product use in unapproved indication [Unknown]

NARRATIVE: CASE EVENT DATE: 20200601
